FAERS Safety Report 18875844 (Version 3)
Quarter: 2021Q3

REPORT INFORMATION
  Report Type: Spontaneous
  Country: US (occurrence: US)
  Receive Date: 20210210
  Receipt Date: 20210915
  Transmission Date: 20211014
  Serious: Yes (Death, Other)
  Sender: FDA-Public Use
  Company Number: US-ELI_LILLY_AND_COMPANY-US202102003182

PATIENT
  Age: 81 Year
  Sex: Male
  Weight: 96.6 kg

DRUGS (15)
  1. AMLODIPINE BESILATE [Concomitant]
     Active Substance: AMLODIPINE BESYLATE
     Indication: PRODUCT USED FOR UNKNOWN INDICATION
     Dosage: 5 MG, DAILY
     Route: 048
     Dates: start: 20201113
  2. FISH OIL [Concomitant]
     Active Substance: FISH OIL
     Dosage: 1200 MG, DAILY
     Route: 048
     Dates: start: 20150313
  3. ASPIRIN E.C [Concomitant]
     Active Substance: ASPIRIN
     Indication: PRODUCT USED FOR UNKNOWN INDICATION
     Dosage: 81 MG, EACH MORNING
     Route: 048
     Dates: start: 20150313
  4. APRESOLINE HYDROCHLORIDE [Concomitant]
     Active Substance: HYDRALAZINE HYDROCHLORIDE
     Indication: PRODUCT USED FOR UNKNOWN INDICATION
     Dosage: 10 MG, TID
     Route: 048
     Dates: start: 20201207
  5. CARVEDILOL. [Concomitant]
     Active Substance: CARVEDILOL
     Indication: CARDIAC DISORDER
     Dosage: 6.25 MG, BID
     Route: 048
     Dates: start: 20201006
  6. CLARITINE [Concomitant]
     Active Substance: LORATADINE
     Indication: HYPERSENSITIVITY
     Dosage: 10 MG, PRN
     Route: 048
  7. FENOFIBRATE. [Concomitant]
     Active Substance: FENOFIBRATE
     Indication: BLOOD CHOLESTEROL
     Dosage: 160 MG, EACH MORNING
     Route: 048
     Dates: start: 20200323
  8. ALLOPURINOL. [Concomitant]
     Active Substance: ALLOPURINOL
     Indication: PRODUCT USED FOR UNKNOWN INDICATION
     Dosage: 100 MG, DAILY
     Route: 048
     Dates: start: 20191118
  9. LISINOPRIL. [Concomitant]
     Active Substance: LISINOPRIL
     Indication: PRODUCT USED FOR UNKNOWN INDICATION
     Dosage: 10 MG, DAILY
     Route: 048
     Dates: start: 20210119
  10. PLAVIX PLUS [Concomitant]
     Active Substance: ASPIRIN\CLOPIDOGREL
     Indication: PRODUCT USED FOR UNKNOWN INDICATION
     Dosage: 75 MG, UNKNOWN
     Route: 065
  11. DOCUSATE SODIUM. [Concomitant]
     Active Substance: DOCUSATE SODIUM
     Dosage: 100 MG, DAILY
     Route: 048
  12. AMIDATE [ETOMIDATE SULFATE] [Concomitant]
     Dosage: 20 MG, SINGLE
     Route: 042
  13. BAMLANIVIMAB 700MG [Suspect]
     Active Substance: BAMLANIVIMAB
     Indication: COVID-19
     Dosage: 700 MG, SINGLE
     Route: 042
     Dates: start: 20201228, end: 20201228
  14. ROSUVASTATIN CALCIUM. [Concomitant]
     Active Substance: ROSUVASTATIN CALCIUM
     Indication: CARDIAC DISORDER
     Dosage: 40 MG, EACH EVENING
     Route: 048
     Dates: start: 20201113
  15. BIOTIN [Concomitant]
     Active Substance: BIOTIN
     Dosage: 800 UG, DAILY
     Route: 048

REACTIONS (11)
  - Urinary incontinence [Unknown]
  - Pneumonia aspiration [Unknown]
  - Fall [Fatal]
  - Blood alcohol increased [Unknown]
  - Limb discomfort [Unknown]
  - Subdural haematoma [Fatal]
  - Ecchymosis [Unknown]
  - Vomiting [Unknown]
  - Blood pressure increased [Unknown]
  - Loss of consciousness [Unknown]
  - Oedema [Unknown]

NARRATIVE: CASE EVENT DATE: 20210114
